FAERS Safety Report 20538342 (Version 1)
Quarter: 2022Q1

REPORT INFORMATION
  Report Type: Spontaneous
  Country: US (occurrence: None)
  Receive Date: 20220301
  Receipt Date: 20220301
  Transmission Date: 20220423
  Serious: Yes (Other)
  Sender: FDA-Public Use
  Company Number: None

PATIENT
  Age: 9 Year
  Sex: Male
  Weight: 28.3 kg

DRUGS (1)
  1. SKYTROFA [Suspect]
     Active Substance: LONAPEGSOMATROPIN-TCGD
     Indication: Growth hormone deficiency
     Dosage: OTHER FREQUENCY : ONCE WEEKLY;?
     Route: 058
     Dates: start: 20220222

REACTIONS (7)
  - Abdominal pain upper [None]
  - Rhinorrhoea [None]
  - Vomiting [None]
  - Pyrexia [None]
  - Fatigue [None]
  - Sneezing [None]
  - Nasopharyngitis [None]

NARRATIVE: CASE EVENT DATE: 20220228
